FAERS Safety Report 7584399-3 (Version None)
Quarter: 2011Q2

REPORT INFORMATION
  Report Type: 
  Country: None (occurrence: None)
  Receive Date: 20110630
  Receipt Date: 20110621
  Transmission Date: 20111010
  Serious: Yes (Hospitalization)
  Sender: FDA-Public Use
  Company Number: JP-UCBSA-025010

PATIENT
  Sex: Female

DRUGS (12)
  1. METHOTREXATE [Concomitant]
     Dosage: 8 MG/ WEEK: 4 MG-2 MG -2 MG
     Dates: start: 20090324
  2. LANSOPRAZOLE [Concomitant]
     Indication: GASTRITIS
     Route: 048
     Dates: start: 20071119
  3. CERTOLIZUMAB PEGOL [Suspect]
     Route: 058
     Dates: start: 20100309
  4. LIMAPROST ALFADEX [Concomitant]
  5. FOLIC ACID [Concomitant]
     Dates: start: 20071119
  6. CERTOLIZUMAB PEGOL [Suspect]
     Indication: RHEUMATOID ARTHRITIS
     Dosage: C87041 STUDY
     Route: 058
     Dates: start: 20090825
  7. SODIUM RISEDRONATE HYDRATE [Concomitant]
     Dates: start: 20090324
  8. PREDNISOLONE [Suspect]
     Indication: RHEUMATOID ARTHRITIS
     Route: 048
     Dates: start: 20081009
  9. CELECOXIB [Concomitant]
     Dates: start: 20090324
  10. CERTOLIZUMAB PEGOL [Suspect]
     Dosage: C87041 STUDY
     Route: 058
     Dates: end: 20100226
  11. LOSARTAN POTASSIUM [Concomitant]
     Dates: start: 20091106
  12. LOXOPROFEN SODIUM [Concomitant]
     Dosage: ADEQUATE DOSE
     Dates: start: 20100727

REACTIONS (3)
  - ANKLE FRACTURE [None]
  - OSTEONECROSIS [None]
  - DEEP VEIN THROMBOSIS [None]
